FAERS Safety Report 6768264-7 (Version None)
Quarter: 2010Q2

REPORT INFORMATION
  Report Type: 
  Country: None (occurrence: None)
  Receive Date: 20100614
  Receipt Date: 20100610
  Transmission Date: 20101027
  Serious: Yes (Life-Threatening, Hospitalization, Other)
  Sender: FDA-Public Use
  Company Number: GB-ASTRAZENECA-2010SE18186

PATIENT
  Age: 60 Year
  Sex: Female
  Weight: 60 kg

DRUGS (11)
  1. MEROPENEM [Suspect]
     Indication: ARTHRITIS
     Route: 042
     Dates: start: 20100403, end: 20100410
  2. MEROPENEM [Suspect]
     Indication: CELLULITIS
     Route: 042
     Dates: start: 20100403, end: 20100410
  3. CEFTRIAXONE [Suspect]
     Indication: ARTHRITIS
     Route: 042
     Dates: start: 20100401
  4. CEFTRIAXONE [Suspect]
     Indication: CELLULITIS
     Route: 042
     Dates: start: 20100401
  5. OMEPRAZOLE [Concomitant]
  6. RAMIPRIL [Concomitant]
  7. BUMETANIDE [Concomitant]
  8. HEPARIN [Concomitant]
  9. METOLAZONE [Concomitant]
  10. SERETIDE [Concomitant]
     Route: 055
  11. TIOTROPIUM BROMIDE [Concomitant]
     Route: 055

REACTIONS (5)
  - ACUTE GENERALISED EXANTHEMATOUS PUSTULOSIS [None]
  - BLOOD PRESSURE DECREASED [None]
  - HYPERSENSITIVITY [None]
  - SKIN EXFOLIATION [None]
  - SKIN NECROSIS [None]
